FAERS Safety Report 25379962 (Version 1)
Quarter: 2025Q2

REPORT INFORMATION
  Report Type: Spontaneous
  Country: FR (occurrence: FR)
  Receive Date: 20250530
  Receipt Date: 20250530
  Transmission Date: 20250716
  Serious: Yes (Other)
  Sender: ORGANON
  Company Number: FR-ORGANON-O2504FRA000315

PATIENT
  Sex: Female

DRUGS (2)
  1. NEXPLANON [Suspect]
     Active Substance: ETONOGESTREL
     Route: 059
     Dates: start: 20250322, end: 20250414
  2. NEXPLANON [Concomitant]
     Active Substance: ETONOGESTREL
     Route: 059
     Dates: end: 20250322

REACTIONS (6)
  - Infection [Recovering/Resolving]
  - Pain in extremity [Recovering/Resolving]
  - Pruritus [Recovering/Resolving]
  - Hypersensitivity [Recovering/Resolving]
  - Skin discolouration [Recovering/Resolving]
  - Complication of device insertion [Recovered/Resolved]

NARRATIVE: CASE EVENT DATE: 20250101
